FAERS Safety Report 14250681 (Version 2)
Quarter: 2018Q1

REPORT INFORMATION
  Report Type: Spontaneous
  Country: US (occurrence: US)
  Receive Date: 20171205
  Receipt Date: 20180119
  Transmission Date: 20180508
  Serious: Yes (Hospitalization, Other)
  Sender: FDA-Public Use
  Company Number: US-ROCHE-2036182

PATIENT
  Age: 6 Year
  Sex: Female

DRUGS (9)
  1. IMMUNOGLOBULIN G [Concomitant]
     Active Substance: HUMAN IMMUNOGLOBULIN G
     Route: 042
  2. CIDOFOVIR. [Concomitant]
     Active Substance: CIDOFOVIR
     Route: 065
  3. GANCICLOVIR. [Suspect]
     Active Substance: GANCICLOVIR
     Route: 042
  4. IMMUNOGLOBULIN G [Concomitant]
     Active Substance: HUMAN IMMUNOGLOBULIN G
     Route: 042
  5. GANCICLOVIR. [Suspect]
     Active Substance: GANCICLOVIR
     Indication: ANTIVIRAL PROPHYLAXIS
     Route: 042
  6. FOSCARNET [Concomitant]
     Active Substance: FOSCARNET
     Route: 065
  7. FOSCARNET [Concomitant]
     Active Substance: FOSCARNET
     Route: 065
  8. CIDOFOVIR. [Concomitant]
     Active Substance: CIDOFOVIR
     Route: 065
  9. PROBENECID. [Concomitant]
     Active Substance: PROBENECID
     Route: 048

REACTIONS (3)
  - Cytomegalovirus chorioretinitis [Unknown]
  - Encephalitis cytomegalovirus [Unknown]
  - Drug resistance [Unknown]
